FAERS Safety Report 12944181 (Version 2)
Quarter: 2016Q4

REPORT INFORMATION
  Report Type: Spontaneous
  Country: US (occurrence: US)
  Receive Date: 20161115
  Receipt Date: 20161201
  Transmission Date: 20170207
  Serious: No
  Sender: FDA-Public Use
  Company Number: US-PFIZER INC-2016523983

PATIENT
  Age: 35 Year
  Sex: Female
  Weight: 126.8 kg

DRUGS (18)
  1. LYRICA [Suspect]
     Active Substance: PREGABALIN
     Dosage: 100 MG, 3X/DAY
     Route: 048
  2. CYMBALTA [Suspect]
     Active Substance: DULOXETINE HYDROCHLORIDE
     Indication: DEPRESSION
     Dosage: 90 MG (3 CAPS), DR PART DAILY
  3. BUSPAR [Concomitant]
     Active Substance: BUSPIRONE HYDROCHLORIDE
     Indication: ANXIETY
  4. CLONAZEPAM. [Concomitant]
     Active Substance: CLONAZEPAM
     Dosage: UNK
  5. LYRICA [Suspect]
     Active Substance: PREGABALIN
     Dosage: 75 MG, 3X/DAY (DAYS, 120)
  6. LYRICA [Suspect]
     Active Substance: PREGABALIN
     Dosage: 100 MG, AS NEEDED (3X/DAY UP TO 4X/DAY IF NEEDED AND TOLERATED)
     Route: 048
  7. HYDROCODONE [Suspect]
     Active Substance: HYDROCODONE
     Dosage: UNK
  8. FAMCICLOVIR. [Concomitant]
     Active Substance: FAMCICLOVIR
     Dosage: 2 DF, DAILY
  9. CYMBALTA [Suspect]
     Active Substance: DULOXETINE HYDROCHLORIDE
     Indication: PAIN
  10. LIDODERM [Concomitant]
     Active Substance: LIDOCAINE
     Dosage: UNK
  11. AMBIEN [Concomitant]
     Active Substance: ZOLPIDEM TARTRATE
     Dosage: 10 MG, DAILY
  12. CYMBALTA [Suspect]
     Active Substance: DULOXETINE HYDROCHLORIDE
     Indication: ANXIETY
     Dosage: 60 MG, 2X/DAY
  13. BUSPAR [Concomitant]
     Active Substance: BUSPIRONE HYDROCHLORIDE
     Indication: PAIN
  14. METHOCARBAMOL. [Concomitant]
     Active Substance: METHOCARBAMOL
     Dosage: 750 MG, 3X/DAY
  15. BUSPAR [Concomitant]
     Active Substance: BUSPIRONE HYDROCHLORIDE
     Indication: DEPRESSION
     Dosage: 10 MG, DAILY
  16. LYRICA [Suspect]
     Active Substance: PREGABALIN
     Dosage: 50 MG, 3X/DAY (DAYS, 120)
  17. LYRICA [Suspect]
     Active Substance: PREGABALIN
     Dosage: 50 MG, 4X/DAY
     Route: 048
  18. LIDOCAINE /00033402/ [Concomitant]
     Active Substance: LIDOCAINE
     Dosage: UNK
     Route: 062

REACTIONS (11)
  - Headache [Unknown]
  - Cognitive disorder [Unknown]
  - Intervertebral disc degeneration [Unknown]
  - Insomnia [Unknown]
  - Small fibre neuropathy [Unknown]
  - Fibromyalgia [Unknown]
  - Fatigue [Unknown]
  - Mood altered [Unknown]
  - Pain [Unknown]
  - Obesity [Unknown]
  - Exercise tolerance decreased [Unknown]
